FAERS Safety Report 15869701 (Version 1)
Quarter: 2019Q1

REPORT INFORMATION
  Report Type: Spontaneous
  Country: FR (occurrence: FR)
  Receive Date: 20190125
  Receipt Date: 20190125
  Transmission Date: 20190417
  Serious: Yes (Disabling)
  Sender: FDA-Public Use
  Company Number: FR-TAKEDA-2019TUS002850

PATIENT
  Age: 75 Year
  Sex: Female

DRUGS (9)
  1. IXPRIM [Concomitant]
     Active Substance: ACETAMINOPHEN\TRAMADOL HYDROCHLORIDE
     Dosage: 37.5/325 MILLIGRAM, QD
     Route: 048
  2. HYPERICUM PERFORATUM [Concomitant]
     Active Substance: HYPERICUM PERFORATUM
     Indication: NEURALGIA
     Dosage: 30 GRAM, BID
  3. ATENOLOL. [Concomitant]
     Active Substance: ATENOLOL
     Dosage: 50 MILLIGRAM, QD
     Route: 065
  4. ADENURIC [Suspect]
     Active Substance: FEBUXOSTAT
     Indication: PRODUCT USED FOR UNKNOWN INDICATION
     Dosage: UNK
     Route: 048
  5. LOXEN (NICARDIPINE HYDROCHLORIDE) [Concomitant]
     Active Substance: NICARDIPINE HYDROCHLORIDE
     Dosage: UNK
     Route: 048
  6. CANNABIDIOL [Suspect]
     Active Substance: CANNABIDIOL
     Indication: PRODUCT USED FOR UNKNOWN INDICATION
     Dosage: UNK
     Route: 065
  7. ATENOLOL. [Concomitant]
     Active Substance: ATENOLOL
     Dosage: 100 MILLIGRAM, QD
     Route: 065
  8. LODOZ [Suspect]
     Active Substance: BISOPROLOL FUMARATE\HYDROCHLOROTHIAZIDE
     Indication: PRODUCT USED FOR UNKNOWN INDICATION
     Dosage: UNK
     Route: 048
  9. VENLAFAXINE [Concomitant]
     Active Substance: VENLAFAXINE HYDROCHLORIDE
     Dosage: UNK
     Route: 048

REACTIONS (11)
  - Visual acuity reduced [Unknown]
  - Dizziness [Unknown]
  - Gout [Unknown]
  - Blood pressure increased [Unknown]
  - Tinnitus [Unknown]
  - Balance disorder [Unknown]
  - Weight increased [Unknown]
  - Xanthelasma [Unknown]
  - Product use issue [Unknown]
  - Disorientation [Unknown]
  - Deafness [Unknown]
